FAERS Safety Report 4620498-3 (Version None)
Quarter: 2005Q1

REPORT INFORMATION
  Report Type: 
  Country: None (occurrence: None)
  Receive Date: 20050321
  Receipt Date: 20050321
  Transmission Date: 20050727
  Serious: Yes (Hospitalization)
  Sender: FDA-Public Use
  Company Number: None

PATIENT
  Age: 55 Year
  Sex: Male
  Weight: 96.1626 kg

DRUGS (8)
  1. PAROXETINE HCL [Suspect]
  2. VELCADE [Suspect]
  3. METOPROLOL TARTRATE [Concomitant]
  4. DIGOXIN [Concomitant]
  5. COUMADIN [Concomitant]
  6. FLOMAX [Concomitant]
  7. RESTORIL [Concomitant]
  8. XANAX [Concomitant]

REACTIONS (7)
  - ASTHENIA [None]
  - HYPONATRAEMIA [None]
  - HYPOTENSION [None]
  - PARAESTHESIA [None]
  - SOMNOLENCE [None]
  - URINARY RETENTION [None]
  - URINARY TRACT INFECTION [None]
